FAERS Safety Report 9052834 (Version 1)
Quarter: 2013Q1

REPORT INFORMATION
  Report Type: Report from Study
  Country: DE (occurrence: DE)
  Receive Date: 20130207
  Receipt Date: 20130207
  Transmission Date: 20140127
  Serious: Yes (Other)
  Sender: FDA-Public Use
  Company Number: DE-B.I. PHARMACEUTICALS,INC./RIDGEFIELD-2013-DE-00285DE

PATIENT
  Sex: Female

DRUGS (9)
  1. PRADAXA [Suspect]
     Route: 048
  2. AMIODARON [Suspect]
     Route: 048
  3. HCT [Suspect]
     Route: 048
  4. BETABLOCKER NOS [Suspect]
     Route: 048
  5. OMEPRAZOLE [Suspect]
     Route: 048
  6. GINSENG EXTRACT [Suspect]
     Route: 048
  7. UNKNOWN [Suspect]
     Route: 048
  8. BOSWELLIA SERRATA RESIN EXTRACT [Suspect]
     Route: 048
  9. HERBALS [Suspect]
     Route: 048

REACTIONS (2)
  - Bradycardia [Unknown]
  - Hypotension [Unknown]
